FAERS Safety Report 16571737 (Version 2)
Quarter: 2019Q3

REPORT INFORMATION
  Report Type: Report from Study
  Country: US (occurrence: US)
  Receive Date: 20190715
  Receipt Date: 20190719
  Transmission Date: 20191004
  Serious: Yes (Hospitalization)
  Sender: FDA-Public Use
  Company Number: US-ARIAD PHARMACEUTICALS, INC-2014US004339

PATIENT
  Age: 79 Year
  Sex: Female

DRUGS (1)
  1. PONATINIB [Suspect]
     Active Substance: PONATINIB
     Indication: CHRONIC MYELOID LEUKAEMIA
     Dosage: 15 MILLIGRAM, QD
     Route: 048
     Dates: start: 20190221

REACTIONS (3)
  - Gastrooesophageal reflux disease [Unknown]
  - Fall [Recovering/Resolving]
  - Oesophageal irritation [Recovered/Resolved]

NARRATIVE: CASE EVENT DATE: 20140303
